FAERS Safety Report 5520601-7 (Version None)
Quarter: 2007Q4

REPORT INFORMATION
  Report Type: 
  Country: None (occurrence: None)
  Receive Date: 20071119
  Receipt Date: 20071111
  Transmission Date: 20080405
  Serious: Yes (Other)
  Sender: FDA-Public Use
  Company Number: DE-AMGEN-UK246022

PATIENT
  Sex: Male
  Weight: 86 kg

DRUGS (9)
  1. ARANESP [Suspect]
     Indication: RENAL FAILURE CHRONIC
     Route: 042
     Dates: start: 20070705
  2. VITARENAL [Concomitant]
     Route: 048
     Dates: start: 20040205
  3. METOPROLOL TARTRATE [Concomitant]
     Route: 048
     Dates: start: 20040925
  4. AMLODIPINE [Concomitant]
     Route: 048
     Dates: start: 20041106
  5. RAMIPRIL [Concomitant]
     Route: 048
     Dates: start: 20050303
  6. ALFACALCIDOL [Concomitant]
     Route: 048
     Dates: start: 20050303
  7. SIMVASTATIN [Concomitant]
     Route: 048
     Dates: start: 20050303
  8. FUROSEMIDE [Concomitant]
     Route: 048
     Dates: start: 20050303
  9. DOXAZOSIN MESYLATE [Concomitant]
     Route: 048
     Dates: start: 20050303

REACTIONS (3)
  - ANAEMIA [None]
  - APLASIA PURE RED CELL [None]
  - RETICULOCYTE COUNT DECREASED [None]
